FAERS Safety Report 13673499 (Version 1)
Quarter: 2017Q2

REPORT INFORMATION
  Report Type: Report from Study
  Country: DE (occurrence: DE)
  Receive Date: 20170621
  Receipt Date: 20170621
  Transmission Date: 20170830
  Serious: Yes (Other)
  Sender: FDA-Public Use
  Company Number: DE-ALKABELLO-2017AA002251

PATIENT
  Age: 18 Year
  Sex: Female
  Weight: 65 kg

DRUGS (4)
  1. ACARIZAX 12 SQ-HDM LYOPHILISAT ZUM EINNEHMEN [Suspect]
     Active Substance: DERMATOPHAGOIDES FARINAE\DERMATOPHAGOIDES PTERONYSSINUS
     Dosage: DOSE UNIT:12 SQ-HOUSE DUST MITE
     Route: 060
     Dates: start: 20161212
  2. SALBUTAMOL [Concomitant]
     Active Substance: ALBUTEROL
  3. EUTHYROX [Concomitant]
     Active Substance: LEVOTHYROXINE SODIUM
     Indication: HYPOTHYROIDISM
     Dates: start: 2013
  4. BECLOMETASONE [Concomitant]
     Active Substance: BECLOMETHASONE DIPROPIONATE

REACTIONS (2)
  - Throat tightness [Recovered/Resolved]
  - Dyspnoea [Recovered/Resolved]

NARRATIVE: CASE EVENT DATE: 20170410
